FAERS Safety Report 8812797 (Version 2)
Quarter: 2012Q4

REPORT INFORMATION
  Report Type: 
  Country: US (occurrence: US)
  Receive Date: 20120927
  Receipt Date: 20121002
  Transmission Date: 20130627
  Serious: Yes (Hospitalization)
  Sender: FDA-Public Use
  Company Number: US-B.I. PHARMACEUTICALS,INC./RIDGEFIELD-2012-BP-23245BP

PATIENT
  Age: 79 Year
  Sex: Male
  Weight: 89 kg

DRUGS (12)
  1. PRADAXA [Suspect]
     Indication: ATRIAL FIBRILLATION
     Dosage: 300 mg
     Route: 048
     Dates: start: 20120828, end: 20120915
  2. SYNTHROID [Concomitant]
  3. ALLOPURINOL [Concomitant]
  4. AMIODARONE [Concomitant]
  5. FINASTERIDE [Concomitant]
  6. FUROSEMIDE [Concomitant]
  7. LOSARTAN [Concomitant]
  8. METOPROLOL [Concomitant]
  9. PRAVASTATIN [Concomitant]
  10. TAMSULOSIN [Concomitant]
  11. TRAMADOL [Concomitant]
  12. AMBIEN [Concomitant]

REACTIONS (1)
  - Thalamus haemorrhage [Recovered/Resolved with Sequelae]
